FAERS Safety Report 19960616 (Version 1)
Quarter: 2021Q4

REPORT INFORMATION
  Report Type: Spontaneous
  Country: US (occurrence: US)
  Receive Date: 20211015
  Receipt Date: 20211015
  Transmission Date: 20220303
  Serious: Yes (Other)
  Sender: FDA-Public Use
  Company Number: US-BAXTER-2021BAX031872

PATIENT
  Age: 37 Year
  Sex: Female

DRUGS (1)
  1. STERILE WATER FOR INJECTION [Suspect]
     Active Substance: WATER
     Indication: Fluid replacement
     Dosage: PERIPHERAL INTRAVENOUS?BAG
     Route: 042
     Dates: start: 20210924, end: 20210924

REACTIONS (5)
  - Haemolysis [Recovered/Resolved]
  - Haematuria [Recovered/Resolved]
  - Administration site pain [Recovered/Resolved]
  - Abdominal pain [Recovered/Resolved]
  - Incorrect product formulation administered [Unknown]

NARRATIVE: CASE EVENT DATE: 20210924
